FAERS Safety Report 7522332-0 (Version None)
Quarter: 2011Q2

REPORT INFORMATION
  Report Type: 
  Country: None (occurrence: None)
  Receive Date: 20110603
  Receipt Date: 20110520
  Transmission Date: 20111010
  Serious: Yes (Hospitalization, Other)
  Sender: FDA-Public Use
  Company Number: PHHY2011IL43982

PATIENT
  Age: 23 Year
  Sex: Female

DRUGS (4)
  1. SUNITINIB MALATE [Concomitant]
     Indication: GASTROINTESTINAL STROMAL TUMOUR
     Route: 048
     Dates: start: 20100101, end: 20100101
  2. GLEEVEC [Suspect]
     Indication: GASTROINTESTINAL STROMAL TUMOUR
     Dosage: 400 MG, DAILY
     Route: 048
     Dates: start: 20090101, end: 20100101
  3. GLEEVEC [Suspect]
     Dosage: 800 MG, DAILY
     Route: 048
     Dates: start: 20100101
  4. GLEEVEC [Suspect]
     Dosage: 600 MG, DAILY
     Route: 048

REACTIONS (8)
  - NEOPLASM MALIGNANT [None]
  - ASTHENIA [None]
  - GASTROINTESTINAL STROMAL TUMOUR [None]
  - LUNG DISORDER [None]
  - DRUG INEFFECTIVE [None]
  - INTESTINAL OBSTRUCTION [None]
  - BONE LESION [None]
  - NAUSEA [None]
